FAERS Safety Report 5954702-6 (Version None)
Quarter: 2008Q4

REPORT INFORMATION
  Report Type: 
  Country: None (occurrence: None)
  Receive Date: 20081117
  Receipt Date: 20081111
  Transmission Date: 20090506
  Serious: Yes (Hospitalization, Other)
  Sender: FDA-Public Use
  Company Number: PHEH2008US10121

PATIENT
  Age: 13 Year
  Sex: Male

DRUGS (3)
  1. ZOMETA [Suspect]
     Indication: OSTEOPOROSIS
     Dosage: UNK
     Dates: start: 20080812
  2. AMITRIPTYLINE HCL [Concomitant]
     Indication: INSOMNIA
     Dosage: UNK
  3. ANTIINFLAMMATORY/ANTIRHEUMATIC PRODUCTS [Concomitant]
     Indication: OSTEOPOROSIS
     Dosage: UNK

REACTIONS (4)
  - ANTINUCLEAR ANTIBODY INCREASED [None]
  - BONE PAIN [None]
  - CHEST PAIN [None]
  - MUSCULOSKELETAL CHEST PAIN [None]
